FAERS Safety Report 20131034 (Version 1)
Quarter: 2021Q4

REPORT INFORMATION
  Report Type: Spontaneous
  Country: US (occurrence: None)
  Receive Date: 20211130
  Receipt Date: 20211130
  Transmission Date: 20220303
  Serious: Yes (Other)
  Sender: FDA-Public Use
  Company Number: US-Hikma Pharmaceuticals USA Inc.-US-H14001-21-03382

PATIENT
  Age: 87 Year
  Sex: Female
  Weight: 85.9 kg

DRUGS (3)
  1. DIGOXIN [Suspect]
     Active Substance: DIGOXIN
     Indication: Atrial fibrillation
     Route: 065
  2. DIGOXIN [Suspect]
     Active Substance: DIGOXIN
     Route: 065
  3. AMIODARONE [Suspect]
     Active Substance: AMIODARONE
     Indication: Atrial fibrillation
     Route: 065

REACTIONS (11)
  - Toxicity to various agents [Recovered/Resolved]
  - Vision blurred [Recovered/Resolved]
  - Dyschromatopsia [Recovered/Resolved]
  - Colour blindness [Recovered/Resolved]
  - Photopsia [Recovered/Resolved]
  - Confusional state [Recovered/Resolved]
  - Visual impairment [Recovered/Resolved]
  - Visual acuity tests abnormal [Recovered/Resolved]
  - Ocular toxicity [Recovered/Resolved]
  - Drug interaction [Recovered/Resolved]
  - Retinal toxicity [Recovered/Resolved]
